FAERS Safety Report 16167472 (Version 2)
Quarter: 2019Q2

REPORT INFORMATION
  Report Type: Spontaneous
  Country: US (occurrence: US)
  Receive Date: 20190408
  Receipt Date: 20190429
  Transmission Date: 20190711
  Serious: Yes (Other)
  Sender: FDA-Public Use
  Company Number: US-HORIZON-RAV-0079-2019

PATIENT
  Age: 1 Day
  Sex: Male

DRUGS (2)
  1. AMMONUL [Suspect]
     Active Substance: SODIUM BENZOATE\SODIUM PHENYLACETATE
  2. RAVICTI [Suspect]
     Active Substance: GLYCEROL PHENYLBUTYRATE
     Indication: ORNITHINE TRANSCARBAMOYLASE DEFICIENCY
     Dosage: 1 ML THREE TIMES DAILY
     Dates: start: 20190327, end: 20190330

REACTIONS (7)
  - Blood sodium decreased [Unknown]
  - Haemodialysis [Unknown]
  - Pulmonary hypertension [Unknown]
  - Blood calcium decreased [Unknown]
  - Ammonia increased [Unknown]
  - Hyperventilation [Unknown]
  - General physical health deterioration [Recovered/Resolved]

NARRATIVE: CASE EVENT DATE: 2019
